FAERS Safety Report 15129218 (Version 1)
Quarter: 2018Q3

REPORT INFORMATION
  Report Type: Spontaneous
  Country: US (occurrence: US)
  Receive Date: 20180711
  Receipt Date: 20180711
  Transmission Date: 20181010
  Serious: Yes (Other)
  Sender: FDA-Public Use
  Company Number: US-PFIZER INC-2018278082

PATIENT
  Age: 79 Year
  Sex: Male
  Weight: 102.6 kg

DRUGS (4)
  1. LYRICA [Suspect]
     Active Substance: PREGABALIN
     Dosage: 2X/DAY(INCREASED IT TO TWICE A DAY FOR 3 DAYS)
     Route: 048
  2. LYRICA [Suspect]
     Active Substance: PREGABALIN
     Dosage: 50 MG, 3X/DAY ((INCREASED TO 3 TIMES A DAY FOR 3 DAYS)
     Route: 048
  3. LYRICA [Suspect]
     Active Substance: PREGABALIN
     Dosage: DECREASED THE PILLS TO TWO A DAY
  4. LYRICA [Suspect]
     Active Substance: PREGABALIN
     Indication: PAIN
     Dosage: ONE A DAY FOR 3 DAYS
     Route: 048
     Dates: start: 20180629

REACTIONS (4)
  - Syncope [Unknown]
  - Fall [Unknown]
  - Dizziness [Unknown]
  - Loss of consciousness [Unknown]

NARRATIVE: CASE EVENT DATE: 20180707
